FAERS Safety Report 6667167-6 (Version None)
Quarter: 2010Q2

REPORT INFORMATION
  Report Type: 
  Country: None (occurrence: None)
  Receive Date: 20100401
  Receipt Date: 20100401
  Transmission Date: 20101027
  Serious: Yes (Hospitalization, Other)
  Sender: FDA-Public Use
  Company Number: None

PATIENT
  Weight: 70.3075 kg

DRUGS (1)
  1. CHANTIX [Suspect]
     Indication: SMOKING CESSATION THERAPY
     Dosage: STANDARD DAILY PO
     Route: 048
     Dates: start: 20080715, end: 20090115

REACTIONS (12)
  - ANGER [None]
  - APPENDICITIS PERFORATED [None]
  - CRYING [None]
  - DEPRESSION [None]
  - EMOTIONAL DISORDER [None]
  - FEELING ABNORMAL [None]
  - FEELING COLD [None]
  - IMPULSIVE BEHAVIOUR [None]
  - LOSS OF EMPLOYMENT [None]
  - NIGHTMARE [None]
  - SUICIDAL IDEATION [None]
  - THINKING ABNORMAL [None]
